FAERS Safety Report 12621384 (Version 5)
Quarter: 2016Q4

REPORT INFORMATION
  Report Type: Spontaneous
  Country: US (occurrence: US)
  Receive Date: 20160804
  Receipt Date: 20161130
  Transmission Date: 20170207
  Serious: No
  Sender: FDA-Public Use
  Company Number: US-PFIZER INC-2016254690

PATIENT
  Age: 58 Year
  Sex: Female
  Weight: 71 kg

DRUGS (4)
  1. IBRANCE [Suspect]
     Active Substance: PALBOCICLIB
     Dosage: UNK
  2. IBRANCE [Suspect]
     Active Substance: PALBOCICLIB
     Dosage: UNK
  3. IBRANCE [Suspect]
     Active Substance: PALBOCICLIB
     Indication: BREAST CANCER METASTATIC
     Dosage: 125 MG, CYCLIC (ONCE DAILY DAYS 1-21 EVERY 28 DAYS)
     Route: 048
     Dates: start: 20160705, end: 20161122
  4. IBRANCE [Suspect]
     Active Substance: PALBOCICLIB
     Dosage: UNK

REACTIONS (6)
  - Blood potassium decreased [Unknown]
  - Fatigue [Unknown]
  - Spinal pain [Unknown]
  - Musculoskeletal chest pain [Unknown]
  - Laboratory test abnormal [Unknown]
  - Neoplasm progression [Unknown]
